FAERS Safety Report 12985699 (Version 1)
Quarter: 2016Q4

REPORT INFORMATION
  Report Type: Report from Study
  Country: US (occurrence: US)
  Receive Date: 20161130
  Receipt Date: 20161130
  Transmission Date: 20170207
  Serious: No
  Sender: FDA-Public Use
  Company Number: US-AMGEN-USASL2016165381

PATIENT
  Age: 59 Year
  Sex: Female

DRUGS (2)
  1. MOBIC [Suspect]
     Active Substance: MELOXICAM
     Indication: PRODUCT USED FOR UNKNOWN INDICATION
     Dosage: UNK
     Route: 065
     Dates: end: 2016
  2. ENBREL [Suspect]
     Active Substance: ETANERCEPT
     Indication: PSORIATIC ARTHROPATHY
     Dosage: UNK
     Route: 065

REACTIONS (8)
  - Underdose [Unknown]
  - Injection site erythema [Unknown]
  - Peripheral swelling [Recovering/Resolving]
  - Injection site pruritus [Unknown]
  - Injection site mass [Unknown]
  - Injection site pain [Unknown]
  - Cough [Unknown]
  - Fear [Unknown]
